FAERS Safety Report 20120362 (Version 1)
Quarter: 2021Q4

REPORT INFORMATION
  Report Type: Spontaneous
  Country: US (occurrence: None)
  Receive Date: 20211126
  Receipt Date: 20211126
  Transmission Date: 20220303
  Serious: No
  Sender: FDA-Public Use
  Company Number: None

PATIENT

DRUGS (1)
  1. SINCALIDE [Suspect]
     Active Substance: SINCALIDE

REACTIONS (2)
  - Product expiration date issue [None]
  - Product label confusion [None]
